FAERS Safety Report 8234078-4 (Version None)
Quarter: 2012Q1

REPORT INFORMATION
  Report Type: 
  Country: None (occurrence: None)
  Receive Date: 20120326
  Receipt Date: 20120326
  Transmission Date: 20120608
  Serious: No
  Sender: FDA-Public Use
  Company Number: None

PATIENT
  Age: 64 Year
  Sex: Female
  Weight: 58.059 kg

DRUGS (1)
  1. NASONEX [Suspect]
     Indication: SEASONAL ALLERGY
     Dosage: ONCE DAILY
     Route: 045

REACTIONS (1)
  - CATARACT [None]
